FAERS Safety Report 23231240 (Version 1)
Quarter: 2023Q4

REPORT INFORMATION
  Report Type: Report from Study
  Country: US (occurrence: US)
  Receive Date: 20231127
  Receipt Date: 20231127
  Transmission Date: 20240109
  Serious: Yes (Other)
  Sender: FDA-Public Use
  Company Number: US-OTSUKA-2023_030412

PATIENT
  Sex: Female

DRUGS (5)
  1. TOLVAPTAN [Suspect]
     Active Substance: TOLVAPTAN
     Indication: Congenital cystic kidney disease
     Dosage: 45 MG, QD (EACH MORNING)
     Route: 048
     Dates: start: 20230228
  2. TOLVAPTAN [Suspect]
     Active Substance: TOLVAPTAN
     Dosage: 15 MG, QD (8 HOUR LATER)
     Route: 048
     Dates: start: 20230228
  3. TOLVAPTAN [Suspect]
     Active Substance: TOLVAPTAN
     Dosage: UNK (RESTARTED)
     Route: 065
  4. FERROUS GLUCEPTATE [Concomitant]
     Active Substance: FERROUS GLUCEPTATE
     Indication: Product used for unknown indication
     Dosage: 324 MG
     Route: 065
  5. PRENATAL [ASCORBIC ACID;FERROUS FUMARATE;FOLIC ACID;RETINOL] [Concomitant]
     Indication: Product used for unknown indication
     Dosage: UNK
     Route: 065

REACTIONS (1)
  - Surgery [Unknown]
